FAERS Safety Report 9189808 (Version 1)
Quarter: 2013Q1

REPORT INFORMATION
  Report Type: Spontaneous
  Country: GB (occurrence: None)
  Receive Date: 20130322
  Receipt Date: 20130322
  Transmission Date: 20140127
  Serious: Yes (Other)
  Sender: FDA-Public Use
  Company Number: GER/UKI/13/0028586

PATIENT
  Age: 61 Year
  Sex: Female

DRUGS (3)
  1. CLOPIDOGREL (CLOPIDOGREL) [Suspect]
     Indication: RETINAL ARTERY OCCLUSION
     Route: 048
     Dates: start: 20121012, end: 20121031
  2. ADCAL-D3 (LEKOVITCA) [Concomitant]
  3. LEVOTHYROXINE (LEVOTHYROXINE) [Concomitant]

REACTIONS (3)
  - Vertigo [None]
  - Aura [None]
  - Migraine [None]
